FAERS Safety Report 13834270 (Version 1)
Quarter: 2017Q3

REPORT INFORMATION
  Report Type: Report from Study
  Country: None (occurrence: BR)
  Receive Date: 20170804
  Receipt Date: 20170804
  Transmission Date: 20171127
  Serious: Yes (Other)
  Sender: FDA-Public Use
  Company Number: BR-ABBVIE-17K-020-2059011-00

PATIENT
  Sex: Male
  Weight: 79 kg

DRUGS (1)
  1. HUMIRA [Suspect]
     Active Substance: ADALIMUMAB
     Indication: ANKYLOSING SPONDYLITIS
     Route: 058
     Dates: start: 20170126

REACTIONS (5)
  - Ocular hyperaemia [Unknown]
  - Back pain [Unknown]
  - Blood cholesterol increased [Unknown]
  - Vision blurred [Not Recovered/Not Resolved]
  - Pterygium [Not Recovered/Not Resolved]

NARRATIVE: CASE EVENT DATE: 2017
